FAERS Safety Report 9486468 (Version 1)
Quarter: 2013Q3

REPORT INFORMATION
  Report Type: Spontaneous
  Country: US (occurrence: None)
  Receive Date: 20130827
  Receipt Date: 20130827
  Transmission Date: 20140515
  Serious: No
  Sender: FDA-Public Use
  Company Number: None

PATIENT
  Age: 50 Year
  Sex: Male
  Weight: 110.22 kg

DRUGS (5)
  1. CYMBALTA [Suspect]
     Indication: DEPRESSION
     Dosage: ONCE DAILY TAKEN BY MOUTH
     Route: 048
     Dates: start: 20130801, end: 20130804
  2. CYMBALTA [Suspect]
     Indication: PAIN
     Dosage: ONCE DAILY TAKEN BY MOUTH
     Route: 048
     Dates: start: 20130801, end: 20130804
  3. HUMIRA [Suspect]
  4. ALPRAZOLAM [Concomitant]
  5. CPAP [Concomitant]

REACTIONS (2)
  - Musculoskeletal chest pain [None]
  - Dyspnoea [None]
